FAERS Safety Report 10485213 (Version 2)
Quarter: 2014Q3

REPORT INFORMATION
  Report Type: Spontaneous
  Country: MX (occurrence: MX)
  Receive Date: 20140930
  Receipt Date: 20140930
  Transmission Date: 20150326
  Serious: Yes (Other)
  Sender: FDA-Public Use
  Company Number: PHHY2014MX018564

PATIENT
  Age: 85 Year
  Sex: Female

DRUGS (9)
  1. FLUOXETINE [Concomitant]
     Active Substance: FLUOXETINE\FLUOXETINE HYDROCHLORIDE
     Indication: ANTICOAGULANT THERAPY
     Dosage: 1 UKN, DAILY
  2. EXFORGE [Suspect]
     Active Substance: AMLODIPINE BESYLATE\VALSARTAN
     Indication: HYPERTENSION
     Dosage: UNK DF (160/5), UNK
     Dates: start: 201109
  3. RASILEZ [Suspect]
     Active Substance: ALISKIREN
     Dosage: 300 MG, UNK
  4. ERYTHROPOIETIN HUMAN [Concomitant]
     Indication: ANAEMIA
     Dosage: 2 UKN, QW
  5. LASIX [Concomitant]
     Active Substance: FUROSEMIDE
     Indication: DIURETIC THERAPY
     Dosage: 1 UKN, DAILY
  6. IMDUR [Concomitant]
     Active Substance: ISOSORBIDE MONONITRATE
     Indication: CHEST PAIN
     Dosage: 1 UKN, DAILY
  7. RANITIDINE [Concomitant]
     Active Substance: RANITIDINE\RANITIDINE HYDROCHLORIDE
     Indication: GASTRIC DISORDER
     Dosage: 1 UKN, DAILY
  8. CALTRATE WITH VITAMIN D [Concomitant]
     Active Substance: CALCIUM CARBONATE\VITAMIN D
     Indication: BLOOD CALCIUM ABNORMAL
     Dosage: 2 DF, DAILY
  9. PLAVIX [Concomitant]
     Active Substance: CLOPIDOGREL BISULFATE
     Indication: COAGULOPATHY
     Dosage: 1 UKN, DAILY

REACTIONS (10)
  - Arterial thrombosis [Not Recovered/Not Resolved]
  - Blood pressure systolic increased [Not Recovered/Not Resolved]
  - Syncope [Unknown]
  - Cardiac disorder [Not Recovered/Not Resolved]
  - Movement disorder [Not Recovered/Not Resolved]
  - Arthralgia [Not Recovered/Not Resolved]
  - Malaise [Not Recovered/Not Resolved]
  - Fatigue [Unknown]
  - Dysstasia [Not Recovered/Not Resolved]
  - Blood disorder [Not Recovered/Not Resolved]
